FAERS Safety Report 14820945 (Version 1)
Quarter: 2018Q2

REPORT INFORMATION
  Report Type: Spontaneous
  Country: US (occurrence: US)
  Receive Date: 20180427
  Receipt Date: 20180427
  Transmission Date: 20180711
  Serious: No
  Sender: FDA-Public Use
  Company Number: US-VERTEX PHARMACEUTICALS-2018-002747

PATIENT
  Age: 37 Year
  Sex: Male

DRUGS (7)
  1. SYMDEKO [Suspect]
     Active Substance: IVACAFTOR\TEZACAFTOR
     Indication: CYSTIC FIBROSIS
     Dosage: 100MG TEZACAFTOR/150MG IVACAFTOR AM; 150MG IVACAFTOR PM
     Route: 048
     Dates: start: 20180408
  2. AZITHROMYCIN ANHYDROUS. [Concomitant]
     Active Substance: AZITHROMYCIN ANHYDROUS
  3. TOBRAMYCIN. [Concomitant]
     Active Substance: TOBRAMYCIN
  4. CREON [Concomitant]
     Active Substance: PANCRELIPASE AMYLASE\PANCRELIPASE LIPASE\PANCRELIPASE PROTEASE
  5. MONTELUKAST [Concomitant]
     Active Substance: MONTELUKAST SODIUM
  6. PREDNISONE. [Concomitant]
     Active Substance: PREDNISONE
  7. CYPROHEPTADINE. [Concomitant]
     Active Substance: CYPROHEPTADINE

REACTIONS (4)
  - Genital rash [Unknown]
  - Vomiting [Unknown]
  - Diarrhoea [Unknown]
  - Pyrexia [Unknown]

NARRATIVE: CASE EVENT DATE: 20180413
